FAERS Safety Report 8973137 (Version 1)
Quarter: 2012Q4

REPORT INFORMATION
  Report Type: Report from Study
  Country: JP (occurrence: JP)
  Receive Date: 20121219
  Receipt Date: 20121219
  Transmission Date: 20130627
  Serious: Yes (Hospitalization, Other)
  Sender: FDA-Public Use
  Company Number: JP-NAPPMUNDI-GBR-2012-0012371

PATIENT
  Sex: Female

DRUGS (18)
  1. OXYCODONE HCL PR TABLET 20 MG [Suspect]
     Indication: CANCER PAIN
     Dosage: 10 mg, bid
     Route: 048
     Dates: start: 20110104
  2. ADO-TRASTUZUMAB EMTANSINE [Suspect]
     Indication: BREAST CANCER
     Dosage: 3.6 mg/kg, every three weeks
     Route: 042
     Dates: start: 20101116
  3. BROTIZOLAM [Concomitant]
     Indication: INSOMNIA
     Dosage: 0.25 mg, UNK
     Route: 048
     Dates: start: 20091117
  4. ZOLOFT [Concomitant]
     Dosage: 25 mg, daily
     Route: 048
     Dates: start: 20080229
  5. FENILENE [Concomitant]
     Dosage: 50 mg, bid
     Route: 048
     Dates: start: 20101207
  6. LOXOPROFEN [Concomitant]
     Dosage: 180 mg, tid
     Route: 048
     Dates: start: 20090427
  7. REBAMIPIDE [Concomitant]
     Indication: CANCER PAIN
     Dosage: 100 mg, tid
     Dates: start: 20081006
  8. METOCLOPRAMIDE [Concomitant]
     Dosage: 5 mg, single
     Route: 048
     Dates: start: 20120413
  9. SODIUM PICOSULFATE [Concomitant]
     Dosage: UNK
     Route: 048
     Dates: start: 20101030
  10. MOHRUS [Concomitant]
     Dosage: UNK
     Route: 061
     Dates: start: 20100525
  11. ZOMETA [Concomitant]
     Dosage: 4 mg, UNK
     Route: 042
     Dates: start: 20081006
  12. BIOFERMIN                          /00275501/ [Concomitant]
     Dosage: 5 mg, UNK
     Route: 048
  13. PROCYLIN [Concomitant]
     Dosage: 20 mcg, tid
     Route: 048
     Dates: start: 20101215
  14. FAMOTIDINE [Concomitant]
     Dosage: 20 mg, bid
     Route: 048
     Dates: start: 20101215
  15. WARFARIN [Concomitant]
     Dosage: 4 mg, daily
     Dates: start: 20101214
  16. MAGNESIUM [Concomitant]
     Dosage: 0.33 mg, tid
     Route: 048
     Dates: start: 20101217
  17. FENTANYL [Concomitant]
     Dosage: 1 mg, daily
     Route: 062
     Dates: start: 20110112
  18. NOVAMIN                            /00013301/ [Concomitant]
     Dosage: 15 mg, tid
     Route: 048

REACTIONS (3)
  - Fall [Unknown]
  - Humerus fracture [Recovering/Resolving]
  - Dizziness [Unknown]
